FAERS Safety Report 16314476 (Version 1)
Quarter: 2019Q2

REPORT INFORMATION
  Report Type: Spontaneous
  Country: US (occurrence: US)
  Receive Date: 20190409
  Receipt Date: 20190409
  Transmission Date: 20190711
  Serious: Yes (Hospitalization)
  Sender: FDA-Public Use
  Company Number: None

PATIENT
  Age: 21 Year
  Sex: Female

DRUGS (6)
  1. AQUADEKS [Concomitant]
     Active Substance: MINERALS\VITAMINS
  2. LEVALBUTEROL HFA [Concomitant]
  3. ZENPEP [Suspect]
     Active Substance: PANCRELIPASE AMYLASE\PANCRELIPASE LIPASE\PANCRELIPASE PROTEASE
     Indication: CYSTIC FIBROSIS
     Dosage: 3 CAPS W/ MEALS; 2 CAPS W/ SNACKS BY MOUTH
     Route: 048
     Dates: start: 20130426
  4. ONDANSETRON [Concomitant]
     Active Substance: ONDANSETRON
  5. FAMOTIDINE. [Concomitant]
     Active Substance: FAMOTIDINE
  6. FLOVENT HFA [Concomitant]
     Active Substance: FLUTICASONE PROPIONATE

REACTIONS (2)
  - Cystic fibrosis [None]
  - Condition aggravated [None]

NARRATIVE: CASE EVENT DATE: 20190409
